FAERS Safety Report 23409763 (Version 1)
Quarter: 2024Q1

REPORT INFORMATION
  Report Type: Spontaneous
  Country: US (occurrence: US)
  Receive Date: 20240117
  Receipt Date: 20240117
  Transmission Date: 20240410
  Serious: Yes (Other)
  Sender: FDA-Public Use
  Company Number: US-MYLANLABS-2024M1004944

PATIENT
  Age: 28 Year
  Sex: Male

DRUGS (9)
  1. PREDNISONE [Suspect]
     Active Substance: PREDNISONE
     Indication: Pemphigus
     Dosage: 60 MILLIGRAM
     Route: 065
  2. PREDNISONE [Suspect]
     Active Substance: PREDNISONE
     Dosage: 10 MILLIGRAM; DOSE WAS DOSE GRADUALLY DECREASED BY 10MG EVERY 5 DAYS
     Route: 065
  3. TACROLIMUS [Suspect]
     Active Substance: TACROLIMUS
     Indication: Pemphigus
     Dosage: UNK, BID; RECEIVED FOR 3 MONTHS
     Route: 061
  4. KETOCONAZOLE [Concomitant]
     Active Substance: KETOCONAZOLE
     Indication: Evidence based treatment
     Dosage: UNK
     Route: 061
  5. MICONAZOLE [Concomitant]
     Active Substance: MICONAZOLE
     Indication: Evidence based treatment
     Dosage: UNK
     Route: 061
  6. TERBINAFINE [Concomitant]
     Active Substance: TERBINAFINE
     Indication: Evidence based treatment
     Dosage: UNK
     Route: 048
  7. SULFACETAMIDE [Concomitant]
     Active Substance: SULFACETAMIDE
     Indication: Evidence based treatment
     Dosage: UNK
     Route: 065
  8. HYDROCORTISONE [Concomitant]
     Active Substance: HYDROCORTISONE
     Indication: Evidence based treatment
     Dosage: UNK
     Route: 061
  9. CLOBETASOL [Concomitant]
     Active Substance: CLOBETASOL
     Indication: Evidence based treatment
     Dosage: UNK
     Route: 061

REACTIONS (2)
  - Drug ineffective [Unknown]
  - Off label use [Unknown]
